FAERS Safety Report 20568804 (Version 2)
Quarter: 2022Q2

REPORT INFORMATION
  Report Type: Report from Study
  Country: US (occurrence: US)
  Receive Date: 20220308
  Receipt Date: 20220518
  Transmission Date: 20220721
  Serious: No
  Sender: FDA-Public Use
  Company Number: US-HARMONY BIOSCIENCES-2020HMY00008

PATIENT
  Sex: Female
  Weight: 56.689 kg

DRUGS (12)
  1. WAKIX [Suspect]
     Active Substance: PITOLISANT HYDROCHLORIDE
     Indication: Narcolepsy
     Dosage: 35.6 MG, 1X/DAY
     Route: 048
  2. WAKIX [Suspect]
     Active Substance: PITOLISANT HYDROCHLORIDE
     Dosage: 35.6 MG, 1X/DAY
     Route: 048
     Dates: start: 20200120
  3. WAKIX [Suspect]
     Active Substance: PITOLISANT HYDROCHLORIDE
     Dosage: DECREASED DOSE
     Route: 048
  4. WAKIX [Suspect]
     Active Substance: PITOLISANT HYDROCHLORIDE
     Dosage: 35.6 MG, 1X/DAY
     Route: 048
     Dates: start: 20200120
  5. AMLODIPINE [Concomitant]
     Active Substance: AMLODIPINE BESYLATE
  6. CELEBREX [Concomitant]
     Active Substance: CELECOXIB
  7. CYMBALTA [Concomitant]
     Active Substance: DULOXETINE HYDROCHLORIDE
  8. GLYCOPYRROL [Concomitant]
  9. OMEPRAZOLE [Concomitant]
     Active Substance: OMEPRAZOLE
  10. RELPAX [Concomitant]
     Active Substance: ELETRIPTAN HYDROBROMIDE
     Dosage: UNK, AS NEEDED
  11. SYNTHROID [Concomitant]
     Active Substance: LEVOTHYROXINE SODIUM
  12. XYREM [Concomitant]
     Active Substance: SODIUM OXYBATE

REACTIONS (3)
  - Bladder disorder [Recovering/Resolving]
  - Intentional product use issue [Recovered/Resolved]
  - Therapeutic product effect decreased [Unknown]
